FAERS Safety Report 16348964 (Version 2)
Quarter: 2019Q2

REPORT INFORMATION
  Report Type: Spontaneous
  Country: US (occurrence: US)
  Receive Date: 20190523
  Receipt Date: 20190613
  Transmission Date: 20190711
  Serious: Yes (Other)
  Sender: FDA-Public Use
  Company Number: US-ASTRAZENECA-2019SE74531

PATIENT
  Sex: Male
  Weight: 93.4 kg

DRUGS (1)
  1. TUDORZA PRESSAIR [Suspect]
     Active Substance: ACLIDINIUM BROMIDE
     Indication: RHINITIS
     Route: 055

REACTIONS (6)
  - Intentional product misuse [Unknown]
  - Device failure [Unknown]
  - Choking [Unknown]
  - Off label use [Unknown]
  - Product use in unapproved indication [Unknown]
  - Secretion discharge [Unknown]
